FAERS Safety Report 5236387-X (Version None)
Quarter: 2007Q1

REPORT INFORMATION
  Report Type: 
  Country: None (occurrence: None)
  Receive Date: 20070208
  Receipt Date: 20070131
  Transmission Date: 20070707
  Serious: Yes (Hospitalization, Other)
  Sender: FDA-Public Use
  Company Number: 2006SP008517

PATIENT
  Age: 72 Year
  Sex: Female

DRUGS (2)
  1. DESLORATADINE [Suspect]
     Indication: RASH
     Dosage: 1 DF; QD; PO
     Route: 048
     Dates: start: 20061006, end: 20061124
  2. CRESTOR [Concomitant]

REACTIONS (3)
  - CONDITION AGGRAVATED [None]
  - PRURITUS [None]
  - RASH ERYTHEMATOUS [None]
